FAERS Safety Report 15702028 (Version 1)
Quarter: 2018Q4

REPORT INFORMATION
  Report Type: Spontaneous
  Country: US (occurrence: US)
  Receive Date: 20181207
  Receipt Date: 20181207
  Transmission Date: 20190205
  Serious: Yes (Disabling)
  Sender: FDA-Public Use
  Company Number: None

PATIENT
  Age: 28 Year
  Sex: Female
  Weight: 80.1 kg

DRUGS (1)
  1. CREST GUM DETOXIFY [Suspect]
     Active Substance: STANNOUS FLUORIDE
     Indication: DENTAL DISORDER PROPHYLAXIS
     Route: 048
     Dates: start: 20181203, end: 20181206

REACTIONS (5)
  - Gingival swelling [None]
  - Oral mucosal blistering [None]
  - Oral pain [None]
  - Oropharyngeal pain [None]
  - Stomatitis [None]

NARRATIVE: CASE EVENT DATE: 20181206
